FAERS Safety Report 16460154 (Version 1)
Quarter: 2019Q2

REPORT INFORMATION
  Report Type: Report from Study
  Country: None (occurrence: AU)
  Receive Date: 20190620
  Receipt Date: 20190620
  Transmission Date: 20190711
  Serious: Yes (Other)
  Sender: FDA-Public Use
  Company Number: AU-BAUSCH-BL-2019-017616

PATIENT
  Age: 4 Year
  Sex: Female

DRUGS (4)
  1. HYDROCORTISONE. [Suspect]
     Active Substance: HYDROCORTISONE
     Indication: DERMATITIS ATOPIC
     Route: 061
  2. METHYLPREDNISOLONE. [Suspect]
     Active Substance: METHYLPREDNISOLONE
     Indication: DERMATITIS ATOPIC
     Dosage: UP TO 15 G PER WEEK FROM AGE 6 MONTHS, USED ON FACE APPROXIMATELY EVERY 3 DAYS
     Route: 061
  3. METHYLPREDNISOLONE. [Suspect]
     Active Substance: METHYLPREDNISOLONE
     Dosage: WET WRAPS AT ONE STAGE
     Route: 061
  4. PIMECROLIMUS. [Concomitant]
     Active Substance: PIMECROLIMUS
     Indication: DERMATITIS ATOPIC
     Dosage: TO EYELIDS
     Route: 061

REACTIONS (2)
  - Steroid withdrawal syndrome [Recovering/Resolving]
  - Therapeutic product effect decreased [Unknown]
